FAERS Safety Report 4341610-X (Version None)
Quarter: 2004Q2

REPORT INFORMATION
  Report Type: 
  Country: None (occurrence: None)
  Receive Date: 20040420
  Receipt Date: 20040408
  Transmission Date: 20050107
  Serious: Yes (Hospitalization, Disabling, Other)
  Sender: FDA-Public Use
  Company Number: KR-BRISTOL-MYERS SQUIBB COMPANY-12555736

PATIENT
  Age: 35 Year
  Sex: Male

DRUGS (4)
  1. MYCOSTATIN OS [Suspect]
     Indication: ORAL CANDIDIASIS
     Route: 048
     Dates: start: 20010814
  2. ACETAMINOPHEN [Concomitant]
     Indication: ORAL CANDIDIASIS
     Dates: start: 20010813, end: 20010814
  3. TRAMADOL HCL [Concomitant]
     Indication: ORAL CANDIDIASIS
     Dates: start: 20010813, end: 20010814
  4. CEFDINIR [Concomitant]
     Indication: ORAL CANDIDIASIS
     Dates: start: 20010813, end: 20010814

REACTIONS (2)
  - BLINDNESS [None]
  - STEVENS-JOHNSON SYNDROME [None]
